FAERS Safety Report 4783720-9 (Version None)
Quarter: 2005Q3

REPORT INFORMATION
  Report Type: 
  Country: None (occurrence: None)
  Receive Date: 20050929
  Receipt Date: 20040407
  Transmission Date: 20060218
  Serious: Yes (Congenital Anomaly)
  Sender: FDA-Public Use
  Company Number: GB-ABBOTT-04P-167-0256258-00

PATIENT
  Sex: Male
  Weight: 3.64 kg

DRUGS (1)
  1. EPILIM [Suspect]
     Indication: DRUG EXPOSURE DURING PREGNANCY

REACTIONS (22)
  - ABNORMAL BEHAVIOUR [None]
  - ASTHMA [None]
  - BLEPHARITIS [None]
  - CONGENITAL JOINT MALFORMATION [None]
  - CONGENITAL MULTIPLEX ARTHROGRYPOSIS [None]
  - CONGENITAL NOSE MALFORMATION [None]
  - CONJUNCTIVITIS [None]
  - COORDINATION ABNORMAL [None]
  - DEVELOPMENTAL DELAY [None]
  - DRUG EXPOSURE DURING PREGNANCY [None]
  - FACIAL DYSMORPHISM [None]
  - FOETAL VALPROATE SYNDROME [None]
  - HAND DEFORMITY [None]
  - HEARING IMPAIRED [None]
  - HYPOGLYCAEMIC SEIZURE [None]
  - HYPOREFLEXIA [None]
  - LEARNING DISORDER [None]
  - POOR SUCKING REFLEX [None]
  - RENAL IMPAIRMENT [None]
  - TALIPES [None]
  - TOE DEFORMITY [None]
  - TREMOR [None]
